FAERS Safety Report 24785992 (Version 1)
Quarter: 2024Q4

REPORT INFORMATION
  Report Type: Spontaneous
  Country: US (occurrence: US)
  Receive Date: 20241229
  Receipt Date: 20241229
  Transmission Date: 20250115
  Serious: No
  Sender: JOHNSON AND JOHNSON
  Company Number: US-VIIV HEALTHCARE-US2024AMR158925

PATIENT
  Age: 19 Year
  Sex: Male

DRUGS (2)
  1. RILPIVIRINE [Suspect]
     Active Substance: RILPIVIRINE
     Indication: HIV infection
     Dosage: UNK (CABOTEGRAVIR 600 MG/3 ML AND RILPIVIRINE 900 MG/3 ML)
     Route: 065
  2. CABOTEGRAVIR SODIUM [Suspect]
     Active Substance: CABOTEGRAVIR SODIUM
     Indication: HIV infection
     Route: 065

REACTIONS (3)
  - Injection site reaction [Recovered/Resolved]
  - Product use in unapproved therapeutic environment [Unknown]
  - Off label use [Unknown]
